FAERS Safety Report 5831656-4 (Version None)
Quarter: 2008Q3

REPORT INFORMATION
  Report Type: 
  Country: None (occurrence: None)
  Receive Date: 20080730
  Receipt Date: 20080716
  Transmission Date: 20090109
  Serious: Yes (Death)
  Sender: FDA-Public Use
  Company Number: 2008AL008635

PATIENT
  Age: 77 Year
  Sex: Male

DRUGS (1)
  1. DIGOXIN [Suspect]
     Indication: CARDIAC FAILURE CONGESTIVE
     Dosage: 0.25MG 1/2 TAB DAILY PO
     Route: 048

REACTIONS (1)
  - DEATH [None]
